FAERS Safety Report 7517366-6 (Version None)
Quarter: 2011Q2

REPORT INFORMATION
  Report Type: 
  Country: None (occurrence: None)
  Receive Date: 20110601
  Receipt Date: 20110523
  Transmission Date: 20111010
  Serious: Yes (Death)
  Sender: FDA-Public Use
  Company Number: AU-PFIZER INC-2011117006

PATIENT
  Age: 24 Year
  Sex: Male

DRUGS (5)
  1. METHYLENEDIOXYMETHAMPHETAMINE [Interacting]
     Dosage: UNK
  2. ALPRAZOLAM [Interacting]
  3. OXAZEPAM [Suspect]
  4. METHAMPHETAMINE HYDROCHLORIDE [Interacting]
     Dosage: UNK
  5. METHADONE HCL [Suspect]

REACTIONS (2)
  - DRUG INTERACTION [None]
  - TOXICITY TO VARIOUS AGENTS [None]
